FAERS Safety Report 22369779 (Version 1)
Quarter: 2023Q2

REPORT INFORMATION
  Report Type: Spontaneous
  Country: US (occurrence: US)
  Receive Date: 20230526
  Receipt Date: 20230526
  Transmission Date: 20230722
  Serious: No
  Sender: FDA-Public Use
  Company Number: US-UCBSA-2023006403

PATIENT
  Sex: Female

DRUGS (1)
  1. CIMZIA [Suspect]
     Active Substance: CERTOLIZUMAB PEGOL
     Indication: Psoriatic arthropathy
     Dosage: 200 MILLIGRAM (INJECT 2 SYRINGES SUBCUTANEOUSLY AT WEEKS 0, 2 AND 4)
     Route: 058
     Dates: start: 202301

REACTIONS (1)
  - Injection site reaction [Unknown]
